FAERS Safety Report 5744217-2 (Version None)
Quarter: 2008Q2

REPORT INFORMATION
  Report Type: 
  Country: None (occurrence: None)
  Receive Date: 20080520
  Receipt Date: 20080509
  Transmission Date: 20081010
  Serious: Yes (Death, Other)
  Sender: FDA-Public Use
  Company Number: PT-BRISTOL-MYERS SQUIBB COMPANY-14194971

PATIENT
  Sex: Male

DRUGS (2)
  1. CYCLOPHOSPHAMIDE [Suspect]
     Dosage: 1000MG,POWDER FOR SOLUTION FOR INJECTION
     Route: 042
     Dates: start: 20080324, end: 20080324
  2. HEPARIN SODIUM [Suspect]
     Indication: ADVERSE EVENT
     Route: 065
     Dates: start: 20080301, end: 20080301

REACTIONS (8)
  - ACUTE ABDOMEN [None]
  - ANURIA [None]
  - CARDIOPULMONARY FAILURE [None]
  - CELL DEATH [None]
  - INTRA-ABDOMINAL HAEMORRHAGE [None]
  - PULMONARY THROMBOSIS [None]
  - SEPSIS [None]
  - TREMOR [None]
